FAERS Safety Report 11030342 (Version 7)
Quarter: 2018Q1

REPORT INFORMATION
  Report Type: Report from Study
  Country: CA (occurrence: CA)
  Receive Date: 20150415
  Receipt Date: 20180322
  Transmission Date: 20180508
  Serious: Yes (Other)
  Sender: FDA-Public Use
  Company Number: PHHY2014CA146647

PATIENT
  Age: 64 Year
  Sex: Female

DRUGS (8)
  1. RABEPRAZOLE [Suspect]
     Active Substance: RABEPRAZOLE
     Dosage: 20 MG, BID
     Route: 065
     Dates: start: 20171227
  2. METFORMIN [Suspect]
     Active Substance: METFORMIN HYDROCHLORIDE
     Dosage: 1000 MG, QD
     Route: 065
     Dates: start: 2017
  3. SANDOSTATIN [Suspect]
     Active Substance: OCTREOTIDE ACETATE
     Indication: NEUROENDOCRINE TUMOUR
     Dosage: 50 UG, ONCE/SINGLE (TEST DOSE)
     Route: 058
     Dates: start: 20141024, end: 20141024
  4. RABEPRAZOLE [Suspect]
     Active Substance: RABEPRAZOLE
     Indication: PRODUCT USED FOR UNKNOWN INDICATION
     Dosage: 20 MG, BID
     Route: 065
     Dates: start: 2017
  5. METFORMIN [Suspect]
     Active Substance: METFORMIN HYDROCHLORIDE
     Indication: PRODUCT USED FOR UNKNOWN INDICATION
     Dosage: 500 MG, BID
     Route: 065
  6. METFORMIN [Suspect]
     Active Substance: METFORMIN HYDROCHLORIDE
     Dosage: 2000 MG, QD
     Route: 065
  7. METFORMIN [Suspect]
     Active Substance: METFORMIN HYDROCHLORIDE
     Dosage: 2 DF, QHS (1000 MG)
     Route: 065
     Dates: start: 2017
  8. SANDOSTATIN LAR DEPOT [Suspect]
     Active Substance: OCTREOTIDE ACETATE
     Indication: NEUROENDOCRINE TUMOUR
     Dosage: 30 MG, QMO (EVERY 4 WEEKS)
     Route: 030
     Dates: start: 20141106

REACTIONS (21)
  - Procedural pain [Unknown]
  - Mass [Recovering/Resolving]
  - Diabetes mellitus [Unknown]
  - Hepatic lesion [Recovered/Resolved]
  - Blood pressure diastolic increased [Unknown]
  - Fatigue [Unknown]
  - Malaise [Unknown]
  - Pyrexia [Unknown]
  - Dyspepsia [Unknown]
  - Ascites [Recovering/Resolving]
  - Heart rate decreased [Unknown]
  - Blood pressure increased [Unknown]
  - Sinusitis [Recovered/Resolved]
  - Nasopharyngitis [Recovering/Resolving]
  - Hot flush [Unknown]
  - Injection site mass [Recovering/Resolving]
  - Blood pressure systolic increased [Unknown]
  - Blood glucose abnormal [Unknown]
  - Malignant neoplasm progression [Unknown]
  - Aortic disorder [Unknown]
  - Influenza [Unknown]

NARRATIVE: CASE EVENT DATE: 20141106
